FAERS Safety Report 5642432-X (Version None)
Quarter: 2008Q1

REPORT INFORMATION
  Report Type: 
  Country: None (occurrence: None)
  Receive Date: 20080228
  Receipt Date: 20080225
  Transmission Date: 20080703
  Serious: No
  Sender: FDA-Public Use
  Company Number: US-BAYER-200814883NA

PATIENT
  Age: 24 Year
  Sex: Female
  Weight: 73 kg

DRUGS (1)
  1. MIRENA [Suspect]
     Indication: CONTRACEPTION
     Route: 015
     Dates: start: 20080114

REACTIONS (1)
  - VAGINAL HAEMORRHAGE [None]
